FAERS Safety Report 6014100-6 (Version None)
Quarter: 2008Q4

REPORT INFORMATION
  Report Type: 
  Country: None (occurrence: None)
  Receive Date: 20081219
  Receipt Date: 20071207
  Transmission Date: 20090506
  Serious: No
  Sender: FDA-Public Use
  Company Number: A0697961A

PATIENT
  Age: 67 Year
  Sex: Male

DRUGS (10)
  1. AVODART [Suspect]
     Indication: PROSTATIC DISORDER
     Dosage: .5MG PER DAY
     Route: 048
     Dates: start: 20061001, end: 20071001
  2. METOPROLOL 50 [Concomitant]
  3. LISINOPRIL [Concomitant]
  4. TERAZOSIN HCL [Concomitant]
  5. SIMVASTATIN [Concomitant]
  6. BUSPIRONE HCL [Concomitant]
  7. SPIRONOLACTONE [Concomitant]
  8. METFORMIN HCL [Concomitant]
  9. ASPIRIN [Concomitant]
  10. DARVOCET [Concomitant]

REACTIONS (1)
  - BREAST PAIN [None]
